FAERS Safety Report 6031227-3 (Version None)
Quarter: 2009Q1

REPORT INFORMATION
  Report Type: 
  Country: None (occurrence: None)
  Receive Date: 20090108
  Receipt Date: 20081230
  Transmission Date: 20090719
  Serious: Yes (Hospitalization)
  Sender: FDA-Public Use
  Company Number: US-BAYER-200839639NA

PATIENT
  Age: 75 Year
  Sex: Male
  Weight: 78 kg

DRUGS (4)
  1. AVELOX [Suspect]
     Indication: COUGH
     Dosage: TOTAL DAILY DOSE: 800 MG  UNIT DOSE: 400 MG
     Dates: start: 20081125
  2. ATENOLOL [Concomitant]
     Route: 048
  3. ATACAND [Concomitant]
  4. ASPIRIN [Concomitant]
     Route: 048

REACTIONS (1)
  - CHEST PAIN [None]
